FAERS Safety Report 23986552 (Version 1)
Quarter: 2024Q2

REPORT INFORMATION
  Report Type: Spontaneous
  Country: US (occurrence: None)
  Receive Date: 20240617
  Receipt Date: 20240617
  Transmission Date: 20240716
  Serious: Yes (Hospitalization)
  Sender: FDA-Public Use
  Company Number: None

PATIENT
  Age: 88 Year
  Sex: Female
  Weight: 58.5 kg

DRUGS (6)
  1. IGALMI [Suspect]
     Active Substance: DEXMEDETOMIDINE
     Indication: Agitation
     Dosage: OTHER FREQUENCY : ONCE;?
     Route: 060
  2. Unfractionated Heparin IV (Bolus) [Concomitant]
  3. Unfractionated Heparin IV [Concomitant]
  4. ZYPREXA [Concomitant]
  5. GEODON [Concomitant]
     Active Substance: ZIPRASIDONE HYDROCHLORIDE\ZIPRASIDONE MESYLATE
  6. WHOLE BLOOD [Concomitant]
     Active Substance: WHOLE BLOOD

REACTIONS (3)
  - Hypotension [None]
  - Haematoma muscle [None]
  - Anaemia [None]

NARRATIVE: CASE EVENT DATE: 20240516
